FAERS Safety Report 8841207 (Version 2)
Quarter: 2012Q4

REPORT INFORMATION
  Report Type: 
  Country: FR (occurrence: FR)
  Receive Date: 20121015
  Receipt Date: 20121122
  Transmission Date: 20130627
  Serious: Yes (Other)
  Sender: FDA-Public Use
  Company Number: FR-BRISTOL-MYERS SQUIBB COMPANY-17026345

PATIENT
  Age: 27 Year
  Sex: Male
  Weight: 64 kg

DRUGS (3)
  1. ABILIFY [Suspect]
     Dosage: Inital Dose:5mg daily for (4days),then increased to 10mg-13Aug2012-ong,then 15mg,Sep12-06Oct12.
     Dates: start: 20120813, end: 20121006
  2. SUBUTEX [Concomitant]
     Route: 048
     Dates: start: 20110925
  3. HAVLANE [Concomitant]
     Indication: SLEEP DISORDER
     Route: 048

REACTIONS (1)
  - Visual acuity reduced [Unknown]
